FAERS Safety Report 5190110-6 (Version None)
Quarter: 2006Q4

REPORT INFORMATION
  Report Type: 
  Country: None (occurrence: None)
  Receive Date: 20061222
  Receipt Date: 20061218
  Transmission Date: 20070319
  Serious: Yes (Other)
  Sender: FDA-Public Use
  Company Number: US-BRISTOL-MYERS SQUIBB COMPANY-13616271

PATIENT
  Age: 51 Year
  Sex: Male
  Weight: 73 kg

DRUGS (14)
  1. CETUXIMAB [Suspect]
     Indication: NEOPLASM MALIGNANT
     Route: 042
     Dates: start: 20061120
  2. CISPLATIN [Suspect]
     Indication: NEOPLASM MALIGNANT
     Route: 042
     Dates: start: 20061120
  3. RADIATION THERAPY [Suspect]
     Indication: NEOPLASM MALIGNANT
     Dosage: 63 GY
  4. ACETAMINOPHEN [Concomitant]
  5. AMBIEN [Concomitant]
  6. DEXAMETHASONE [Concomitant]
  7. DIPHENHYDRAMINE HCL [Concomitant]
  8. KYTRIL [Concomitant]
  9. MINOCYCLINE HCL [Concomitant]
  10. OXYCODONE HCL [Concomitant]
  11. PEPCID [Concomitant]
  12. PROCHLORPERAZINE [Concomitant]
  13. REGLAN [Concomitant]
  14. ZOFRAN [Concomitant]

REACTIONS (2)
  - LYMPHOPENIA [None]
  - WHITE BLOOD CELL COUNT DECREASED [None]
